FAERS Safety Report 15214872 (Version 5)
Quarter: 2019Q2

REPORT INFORMATION
  Report Type: Spontaneous
  Country: US (occurrence: US)
  Receive Date: 20180730
  Receipt Date: 20190430
  Transmission Date: 20190711
  Serious: Yes (Hospitalization)
  Sender: FDA-Public Use
  Company Number: US-PFIZER INC-2018305244

PATIENT
  Age: 50 Year
  Sex: Female

DRUGS (3)
  1. LYRICA [Suspect]
     Active Substance: PREGABALIN
     Indication: ANALGESIC INTERVENTION SUPPORTIVE THERAPY
  2. LYRICA [Suspect]
     Active Substance: PREGABALIN
     Indication: POST LAMINECTOMY SYNDROME
  3. LYRICA [Suspect]
     Active Substance: PREGABALIN
     Indication: FIBROMYALGIA
     Dosage: 150 MG, 3X/DAY, (1 CAP(S) 3 TIMES A DAY 90 DAYS)
     Route: 048

REACTIONS (4)
  - Feeding disorder [Unknown]
  - Diarrhoea [Unknown]
  - Drug withdrawal syndrome [Unknown]
  - Intentional product use issue [Unknown]
